FAERS Safety Report 25750622 (Version 1)
Quarter: 2025Q3

REPORT INFORMATION
  Report Type: Spontaneous
  Country: EU (occurrence: EU)
  Receive Date: 20250902
  Receipt Date: 20250902
  Transmission Date: 20251020
  Serious: Yes (Other)
  Sender: ABBVIE
  Company Number: EU-BAYER-2025A109510

PATIENT
  Sex: Female

DRUGS (1)
  1. LEVONORGESTREL [Suspect]
     Active Substance: LEVONORGESTREL
     Indication: Product used for unknown indication
     Route: 015

REACTIONS (6)
  - Post procedural discomfort [Unknown]
  - Procedural pain [Recovered/Resolved]
  - Uterine perforation [Unknown]
  - Device issue [Unknown]
  - Procedural dizziness [Unknown]
  - Abdominal pain [Unknown]
